FAERS Safety Report 4456719-X (Version None)
Quarter: 2004Q3

REPORT INFORMATION
  Report Type: 
  Country: None (occurrence: None)
  Receive Date: 20040917
  Receipt Date: 20040903
  Transmission Date: 20050211
  Serious: Yes (Hospitalization)
  Sender: FDA-Public Use
  Company Number: 208855

PATIENT
  Age: 57 Year
  Sex: Male

DRUGS (14)
  1. AVASTIN [Suspect]
     Indication: COLORECTAL CANCER METASTATIC
     Dosage: 430 MG, Q2W, INTRAVENOUS
     Route: 042
     Dates: start: 20040427, end: 20040803
  2. FLUOROURACIL [Concomitant]
  3. OXALIPLATIN [Concomitant]
  4. CIPROFLOXACIN [Concomitant]
  5. IV CONTRAST DYE (IV CONTRAST DYE) [Concomitant]
  6. LEUCOVORIN CALCIUM [Concomitant]
  7. ACCUPRIL [Concomitant]
  8. HYDROCHLOROTHIAZIDE [Concomitant]
  9. NEULASTA [Concomitant]
  10. MEGACE SUSPENSION (MEGESTROL ACETATE) [Concomitant]
  11. COUMADIN [Concomitant]
  12. VITAMIN B1 TAB [Concomitant]
  13. MULTIVITAMIN (MULTIVITAMINS NOS) [Concomitant]
  14. VITAMIN E (VITAMINI E) [Concomitant]

REACTIONS (6)
  - ARTERIOSCLEROSIS [None]
  - GLOMERULONEPHRITIS PROLIFERATIVE [None]
  - HAEMATURIA [None]
  - RENAL FAILURE ACUTE [None]
  - RENAL INTERSTITIAL FIBROSIS [None]
  - RENAL TUBULAR ATROPHY [None]
